FAERS Safety Report 4504599-6 (Version None)
Quarter: 2004Q4

REPORT INFORMATION
  Report Type: 
  Country: None (occurrence: None)
  Receive Date: 20041116
  Receipt Date: 20041108
  Transmission Date: 20050328
  Serious: Yes (Death, Life-Threatening)
  Sender: FDA-Public Use
  Company Number: SEWYE190610NOV04

PATIENT
  Age: 42 Year
  Sex: Female

DRUGS (3)
  1. EFEXOR DEOT (VENLAFAXINE HYDROCHLORIDE, CAPSULE, EXTENDED RELEASE, 0) [Suspect]
     Indication: DEPRESSION
     Dosage: 150 MG 1X PER 1 DAY ORAL TREATMENT STARTED SEVERAL YEARS AGO
     Route: 048
  2. ASPIRIN [Concomitant]
  3. ATENOLOL [Concomitant]

REACTIONS (2)
  - MYOCARDITIS [None]
  - VENTRICULAR TACHYCARDIA [None]
